FAERS Safety Report 9107685 (Version 1)
Quarter: 2013Q1

REPORT INFORMATION
  Report Type: Spontaneous
  Country: US (occurrence: US)
  Receive Date: 20130222
  Receipt Date: 20130222
  Transmission Date: 20140127
  Serious: No
  Sender: FDA-Public Use
  Company Number: US-TEVA-350855USA

PATIENT
  Age: 60 Year
  Sex: Male

DRUGS (1)
  1. TREANDA [Suspect]
     Indication: PLASMA CELL MYELOMA
     Dosage: THIRD CYCLE
     Route: 042

REACTIONS (4)
  - Infection [Unknown]
  - Pyrexia [Unknown]
  - Confusional state [Unknown]
  - Disorientation [Unknown]
